FAERS Safety Report 4493374-7 (Version None)
Quarter: 2004Q4

REPORT INFORMATION
  Report Type: 
  Country: None (occurrence: None)
  Receive Date: 20041102
  Receipt Date: 20041019
  Transmission Date: 20050328
  Serious: Yes (Other)
  Sender: FDA-Public Use
  Company Number: 2004RL000117

PATIENT
  Age: 53 Year
  Sex: Female
  Weight: 70.75 kg

DRUGS (36)
  1. DYNACIRC CR [Suspect]
     Indication: DRUG USE FOR UNKNOWN INDICATION
     Dosage: 10 MG;QD;PO
     Route: 048
     Dates: start: 20040414, end: 20040813
  2. DIOVAN HCT [Suspect]
     Indication: HYPERTENSION
     Dosage: SEE IMAGE
     Route: 048
     Dates: end: 20040813
  3. DIOVAN HCT [Suspect]
     Indication: HYPERTENSION
     Dosage: SEE IMAGE
     Route: 048
     Dates: start: 20040316
  4. REQUIP [Concomitant]
  5. QVAR 40 [Concomitant]
  6. AMITRIPTYLINE [Concomitant]
  7. SONATA [Concomitant]
  8. GUAIFENESIN [Concomitant]
  9. CLONIDINE HCL [Concomitant]
  10. PREMARIN [Concomitant]
  11. POTASSIUM [Concomitant]
  12. SYNTHROID [Concomitant]
  13. NEURONTIN [Concomitant]
  14. ARAVA [Concomitant]
  15. ZYRTEC [Concomitant]
  16. CELEXA [Concomitant]
  17. MIRALAX [Concomitant]
  18. PRILOSEC [Concomitant]
  19. CALCIUM [Concomitant]
  20. VITAMIN D [Concomitant]
  21. OCUVITE [Concomitant]
  22. CYCLOSPORINE [Concomitant]
  23. THALIDOMIDE [Concomitant]
  24. ASTELIN [Concomitant]
  25. RHINOCORT [Concomitant]
  26. OSCAL 500-D [Concomitant]
  27. ULTRACET [Concomitant]
  28. AZMACORT [Concomitant]
  29. PHENERGAN [Concomitant]
  30. CLONIDINE HCL [Concomitant]
  31. NYSTATIN [Concomitant]
  32. RESTORIL [Concomitant]
  33. COREG [Concomitant]
  34. ZAROXOLYN [Concomitant]
  35. FENEBIN [Concomitant]
  36. DEMADEX [Concomitant]

REACTIONS (5)
  - BLOOD PRESSURE INCREASED [None]
  - CONVULSION [None]
  - DYSKINESIA [None]
  - LOWER LIMB FRACTURE [None]
  - TREMOR [None]
